FAERS Safety Report 16592320 (Version 1)
Quarter: 2019Q3

REPORT INFORMATION
  Report Type: Report from Study
  Country: US (occurrence: US)
  Receive Date: 20190718
  Receipt Date: 20190718
  Transmission Date: 20191004
  Serious: Yes (Other)
  Sender: FDA-Public Use
  Company Number: US-INCYTE CORPORATION-2019IN006128

PATIENT

DRUGS (27)
  1. JAKAFI [Suspect]
     Active Substance: RUXOLITINIB
     Indication: CHRONIC GRAFT VERSUS HOST DISEASE
     Dosage: 10 MILLIGRAM, BID
     Route: 048
     Dates: start: 20181114
  2. TACROLIMUS. [Concomitant]
     Active Substance: TACROLIMUS
     Dosage: 0.2 MILLIGRAM, Q12H
     Route: 065
     Dates: start: 20190628
  3. PREDNISONE. [Concomitant]
     Active Substance: PREDNISONE
     Dosage: 5 MG QAM, 2.5 MG QPM
     Route: 065
     Dates: start: 20190130, end: 20190213
  4. TACROLIMUS. [Concomitant]
     Active Substance: TACROLIMUS
     Dosage: 0.3 MILLIGRAM (PER 0.6 ML), Q12H
     Route: 065
     Dates: start: 20190531, end: 20190627
  5. HYDROCORTISONE. [Concomitant]
     Active Substance: HYDROCORTISONE
     Dosage: 5 MILLIGRAM, TID
     Route: 065
     Dates: start: 20190516, end: 20190612
  6. BACTRIM [Concomitant]
     Active Substance: SULFAMETHOXAZOLE\TRIMETHOPRIM
     Indication: PROPHYLAXIS
     Dosage: UNK
     Route: 065
  7. TACROLIMUS. [Concomitant]
     Active Substance: TACROLIMUS
     Dosage: 0.4 MILLIGRAM (0.8 ML), Q12H
     Route: 065
     Dates: start: 20190503, end: 20190530
  8. HYDROCORTISONE. [Concomitant]
     Active Substance: HYDROCORTISONE
     Dosage: 10 MG QAM, 5 MG AFTERNOON, 5 MG QPM
     Route: 065
     Dates: start: 20190410, end: 20190515
  9. VALGANCICLOVIR. [Concomitant]
     Active Substance: VALGANCICLOVIR
     Indication: CYTOMEGALOVIRUS INFECTION
     Dosage: UNK
     Route: 065
     Dates: start: 20180305
  10. PREDNISONE. [Concomitant]
     Active Substance: PREDNISONE
     Dosage: 10 MILLIGRAM, BID
     Route: 065
     Dates: start: 20181205, end: 20181211
  11. PREDNISONE. [Concomitant]
     Active Substance: PREDNISONE
     Dosage: 7.5 MG QAM, 5 MG QPM
     Route: 065
     Dates: start: 20181219, end: 20190102
  12. TACROLIMUS. [Concomitant]
     Active Substance: TACROLIMUS
     Indication: CHRONIC GRAFT VERSUS HOST DISEASE
     Dosage: UNK
     Route: 065
     Dates: start: 20181010
  13. PREDNISONE. [Concomitant]
     Active Substance: PREDNISONE
     Indication: CHRONIC GRAFT VERSUS HOST DISEASE
     Dosage: 1 MG/KG/DAY
     Route: 065
     Dates: start: 20181017
  14. PREDNISONE. [Concomitant]
     Active Substance: PREDNISONE
     Dosage: 20 MG QAM, 15 MG QPM
     Route: 065
     Dates: start: 20181114, end: 20181120
  15. HYDROCORTISONE. [Concomitant]
     Active Substance: HYDROCORTISONE
     Indication: CHRONIC GRAFT VERSUS HOST DISEASE
     Dosage: 10 MG TID
     Route: 065
     Dates: start: 20190214, end: 20190226
  16. SEPTRA [Concomitant]
     Active Substance: SULFAMETHOXAZOLE\TRIMETHOPRIM
     Indication: PROPHYLAXIS
     Dosage: UNK
     Route: 065
     Dates: start: 20180623
  17. JAKAFI [Suspect]
     Active Substance: RUXOLITINIB
     Dosage: UNK
     Route: 048
     Dates: start: 20190228
  18. PREDNISONE. [Concomitant]
     Active Substance: PREDNISONE
     Dosage: 15 MILLIGRAM, BID
     Route: 065
     Dates: start: 20181121, end: 20181127
  19. PREDNISONE. [Concomitant]
     Active Substance: PREDNISONE
     Dosage: 7.5 MILLIGRAM, BID
     Route: 065
     Dates: start: 20181212, end: 20181218
  20. PREDNISONE. [Concomitant]
     Active Substance: PREDNISONE
     Dosage: 5 MILLIGRAM, BID
     Route: 065
     Dates: start: 20190103, end: 20190129
  21. HYDROCORTISONE. [Concomitant]
     Active Substance: HYDROCORTISONE
     Dosage: 10 MG QAM, 5 MG AFTERNOON, 10 MG QPM
     Route: 065
     Dates: start: 20190227, end: 20190409
  22. CYTOXAN [Concomitant]
     Active Substance: CYCLOPHOSPHAMIDE
     Indication: PRODUCT USED FOR UNKNOWN INDICATION
     Route: 065
  23. JAKAFI [Suspect]
     Active Substance: RUXOLITINIB
     Dosage: 10 MILLIGRAM, BID
     Route: 048
     Dates: start: 20181121
  24. HYDROCORTISONE. [Concomitant]
     Active Substance: HYDROCORTISONE
     Dosage: 5 MILLIGRAM, QAM
     Route: 065
     Dates: start: 20190711
  25. PREDNISONE. [Concomitant]
     Active Substance: PREDNISONE
     Dosage: 15 MG QAM, 10 MG QPM
     Route: 065
     Dates: start: 20181128, end: 20181204
  26. HYDROCORTISONE. [Concomitant]
     Active Substance: HYDROCORTISONE
     Dosage: 5 MILLIGRAM, BID
     Route: 065
     Dates: start: 20190613, end: 20190710
  27. VORICONAZOLE. [Concomitant]
     Active Substance: VORICONAZOLE
     Indication: PROPHYLAXIS
     Dosage: 200 MILLIGRAM, BID
     Route: 065
     Dates: start: 20180221

REACTIONS (18)
  - Retroperitoneal haemorrhage [Unknown]
  - Tendon injury [Unknown]
  - Product dose omission [Unknown]
  - Fatigue [Unknown]
  - Joint injury [Unknown]
  - Acute kidney injury [Unknown]
  - Ligament sprain [Unknown]
  - Abdominal pain upper [Recovered/Resolved with Sequelae]
  - Foot fracture [Recovering/Resolving]
  - Oral papule [Unknown]
  - Secondary hypertension [Recovered/Resolved]
  - Off label use [Unknown]
  - Splenic infection fungal [Unknown]
  - Rash erythematous [Recovered/Resolved]
  - Intestinal haematoma [Unknown]
  - Cushingoid [Unknown]
  - Therapeutic response unexpected [Unknown]
  - Product administered to patient of inappropriate age [Unknown]

NARRATIVE: CASE EVENT DATE: 20181229
